FAERS Safety Report 21455270 (Version 2)
Quarter: 2022Q4

REPORT INFORMATION
  Report Type: Report from Study
  Country: CL (occurrence: CL)
  Receive Date: 20221014
  Receipt Date: 20221201
  Transmission Date: 20230113
  Serious: Yes (Other)
  Sender: FDA-Public Use
  Company Number: CL-NOVARTISPH-NVSC2022CL140614

PATIENT
  Sex: Female

DRUGS (2)
  1. FULVESTRANT [Suspect]
     Active Substance: FULVESTRANT
     Indication: Breast cancer
     Dosage: UNK (START DATE: MAY)
     Route: 065
  2. PALBOCICLIB [Concomitant]
     Active Substance: PALBOCICLIB
     Indication: Product used for unknown indication
     Dosage: UNK
     Route: 065

REACTIONS (12)
  - Diabetes mellitus [Unknown]
  - Blood glucose increased [Unknown]
  - Metastases to liver [Unknown]
  - Breast cancer metastatic [Unknown]
  - Metastases to spine [Unknown]
  - Malaise [Unknown]
  - Feeling abnormal [Unknown]
  - Insulin resistance [Unknown]
  - Pain [Unknown]
  - Injury [Unknown]
  - Agitation [Unknown]
  - Nervousness [Unknown]

NARRATIVE: CASE EVENT DATE: 20210101
